FAERS Safety Report 4778370-4 (Version None)
Quarter: 2005Q3

REPORT INFORMATION
  Report Type: 
  Country: None (occurrence: None)
  Receive Date: 20050926
  Receipt Date: 20020830
  Transmission Date: 20060218
  Serious: Yes (Hospitalization)
  Sender: FDA-Public Use
  Company Number: US-GLAXOSMITHKLINE-A0379583A

PATIENT
  Age: 9 Year
  Sex: Female
  Weight: 27 kg

DRUGS (6)
  1. CARVEDILOL [Suspect]
     Route: 048
     Dates: start: 20020621
  2. ASPIRIN [Concomitant]
     Route: 048
     Dates: start: 20020510
  3. LASIX [Concomitant]
     Route: 048
     Dates: start: 20020510
  4. DIGOXIN [Concomitant]
     Route: 048
     Dates: start: 20020510
  5. LISINOPRIL [Concomitant]
     Route: 048
     Dates: start: 20020510
  6. ALDACTAZIDE [Concomitant]
     Route: 048
     Dates: start: 20020510

REACTIONS (2)
  - BRADYCARDIA [None]
  - MENTAL STATUS CHANGES [None]
